FAERS Safety Report 11091285 (Version 2)
Quarter: 2015Q2

REPORT INFORMATION
  Report Type: Spontaneous
  Country: MX (occurrence: MX)
  Receive Date: 20150505
  Receipt Date: 20150512
  Transmission Date: 20150821
  Serious: Yes (Hospitalization, Other)
  Sender: FDA-Public Use
  Company Number: MX-GLAXOSMITHKLINE INC.-MX2015GSK059217

PATIENT
  Age: 35 Year
  Sex: Female

DRUGS (4)
  1. 5 FLUOROURACIL [Concomitant]
     Active Substance: FLUOROURACIL
  2. ZOFRAN [Suspect]
     Active Substance: ONDANSETRON HYDROCHLORIDE
     Dosage: UNK
     Dates: start: 20150428
  3. DOXORUBICIN [Concomitant]
     Active Substance: DOXORUBICIN
     Indication: PRODUCT USED FOR UNKNOWN INDICATION
  4. ZOFRAN [Suspect]
     Active Substance: ONDANSETRON HYDROCHLORIDE
     Indication: BREAST CANCER
     Dosage: UNK
     Dates: start: 20150310

REACTIONS (3)
  - Transmission of an infectious agent via product [Recovered/Resolved]
  - Bacteraemia [Not Recovered/Not Resolved]
  - Burkholderia cepacia complex infection [Unknown]

NARRATIVE: CASE EVENT DATE: 20150311
